FAERS Safety Report 7630649-4 (Version None)
Quarter: 2011Q3

REPORT INFORMATION
  Report Type: 
  Country: None (occurrence: None)
  Receive Date: 20110722
  Receipt Date: 20110714
  Transmission Date: 20111222
  Serious: Yes (Hospitalization)
  Sender: FDA-Public Use
  Company Number: US-MPIJNJ-2011-02359

PATIENT
  Sex: Male
  Weight: 81.633 kg

DRUGS (3)
  1. BENDAMUSTINE [Suspect]
     Indication: LYMPHOMA
     Dosage: 167 MG, CYCLIC
     Route: 042
     Dates: start: 20110113, end: 20110426
  2. RITUXIMAB [Suspect]
     Indication: LYMPHOMA
     Dosage: 500 MG, CYCLIC
     Route: 042
     Dates: start: 20110113, end: 20110510
  3. VELCADE [Suspect]
     Indication: LYMPHOMA
     Dosage: 2.98 MG, CYCLIC
     Route: 042
     Dates: start: 20110113, end: 20110510

REACTIONS (1)
  - SKIN INFECTION [None]
